FAERS Safety Report 23904173 (Version 1)
Quarter: 2024Q2

REPORT INFORMATION
  Report Type: Spontaneous
  Country: CN (occurrence: CN)
  Receive Date: 20240527
  Receipt Date: 20240527
  Transmission Date: 20240716
  Serious: Yes (Life-Threatening, Hospitalization)
  Sender: FDA-Public Use
  Company Number: CN-SHANGHAI JUNSHI BIOSCIENCES CO., LTD.-CN2024010148

PATIENT

DRUGS (7)
  1. TORIPALIMAB [Suspect]
     Active Substance: TORIPALIMAB
     Indication: Nasopharyngeal cancer recurrent
     Dosage: 240 MG (D1), ONCE EVERY 3 WEEKS
     Route: 041
     Dates: start: 20240511, end: 20240511
  2. GEMCITABINE HYDROCHLORIDE [Suspect]
     Active Substance: GEMCITABINE HYDROCHLORIDE
     Indication: Nasopharyngeal cancer recurrent
     Dosage: 1 G (1000MG/M^2; D1,D8), EVERY 3 WEEKS AS A CYCLE
     Route: 041
     Dates: start: 20240511, end: 20240511
  3. GEMCITABINE HYDROCHLORIDE [Suspect]
     Active Substance: GEMCITABINE HYDROCHLORIDE
     Indication: Nasopharyngeal cancer recurrent
     Dosage: 0.15 G (1000MG/M^2,; D1, D8), EVERY 3 WEEKS AS A CYCLE
     Route: 041
     Dates: start: 20240511, end: 20240511
  4. CARBOPLATIN [Suspect]
     Active Substance: CARBOPLATIN
     Indication: Nasopharyngeal cancer recurrent
     Dosage: 400 MG (AREA UNDER THE TIME CURVE=5, D1), Q3W
     Route: 041
     Dates: start: 20240511, end: 20240511
  5. SODIUM CHLORIDE [Concomitant]
     Active Substance: SODIUM CHLORIDE
     Indication: Medication dilution
     Dosage: 100 ML (D1), Q3W
     Dates: start: 20240511, end: 20240511
  6. SODIUM CHLORIDE [Concomitant]
     Active Substance: SODIUM CHLORIDE
     Dosage: 100 ML (D1, D8), EVERY 3 WEEKS AS A CYCLE
     Dates: start: 20240511, end: 20240511
  7. DEXTROSE [Concomitant]
     Active Substance: DEXTROSE\DEXTROSE MONOHYDRATE
     Indication: Medication dilution
     Dosage: 250 ML (D1), Q3W
     Dates: start: 20240511, end: 20240511

REACTIONS (2)
  - White blood cell count decreased [Recovered/Resolved]
  - Neutrophil count decreased [Recovered/Resolved]

NARRATIVE: CASE EVENT DATE: 20240515
